FAERS Safety Report 9184641 (Version 2)
Quarter: 2013Q2

REPORT INFORMATION
  Report Type: Report from Study
  Country: US (occurrence: US)
  Receive Date: 20130324
  Receipt Date: 20130430
  Transmission Date: 20140414
  Serious: Yes (Hospitalization, Other)
  Sender: FDA-Public Use
  Company Number: US-ACTELION-A-US2013-80688

PATIENT
  Age: 70 Year
  Sex: Female

DRUGS (1)
  1. TRACLEER [Suspect]
     Indication: PULMONARY ARTERIAL HYPERTENSION
     Dosage: 125 MG, BID
     Route: 048

REACTIONS (12)
  - Transfusion [Unknown]
  - Rectal haemorrhage [Unknown]
  - Hypotension [Unknown]
  - Haemoglobin decreased [Not Recovered/Not Resolved]
  - Aortic valve stenosis [Not Recovered/Not Resolved]
  - Haematochezia [Recovered/Resolved]
  - Headache [Not Recovered/Not Resolved]
  - Nail disorder [Recovered/Resolved]
  - Nail dystrophy [Not Recovered/Not Resolved]
  - Nail discolouration [Not Recovered/Not Resolved]
  - Faeces discoloured [Recovered/Resolved]
  - Alanine aminotransferase increased [Unknown]
